FAERS Safety Report 9004426 (Version 1)
Quarter: 2013Q1

REPORT INFORMATION
  Report Type: Spontaneous
  Country: US (occurrence: None)
  Receive Date: 20130103
  Receipt Date: 20130103
  Transmission Date: 20140127
  Serious: Yes (Disabling)
  Sender: FDA-Public Use
  Company Number: None

PATIENT
  Age: 70 Year
  Sex: 0
  Weight: 52.16 kg

DRUGS (1)
  1. PREDNISONE [Suspect]
     Indication: ALOPECIA
     Dosage: OVER 5 WKS IN DECL PO
     Dates: start: 20110501, end: 20121201

REACTIONS (5)
  - Chest pain [None]
  - Neck pain [None]
  - Pain in extremity [None]
  - Pain of skin [None]
  - Contusion [None]
